FAERS Safety Report 13048189 (Version 1)
Quarter: 2016Q4

REPORT INFORMATION
  Report Type: Spontaneous
  Country: US (occurrence: US)
  Receive Date: 20161220
  Receipt Date: 20161220
  Transmission Date: 20170207
  Serious: Yes (Life-Threatening, Hospitalization)
  Sender: FDA-Public Use
  Company Number: None

PATIENT
  Age: 56 Year
  Sex: Female
  Weight: 63 kg

DRUGS (1)
  1. NIVOLUMAB [Suspect]
     Active Substance: NIVOLUMAB
     Indication: SMALL CELL LUNG CANCER METASTATIC
     Dosage: ?          OTHER FREQUENCY:EVERY OTHER WEEK;?
     Route: 040
     Dates: start: 20161125, end: 20161209

REACTIONS (4)
  - Metabolic encephalopathy [None]
  - Hyperglycaemia [None]
  - Metabolic acidosis [None]
  - Asthenia [None]

NARRATIVE: CASE EVENT DATE: 20161219
